FAERS Safety Report 10668703 (Version 1)
Quarter: 2014Q4

REPORT INFORMATION
  Report Type: Spontaneous
  Country: US (occurrence: US)
  Receive Date: 20141222
  Receipt Date: 20141222
  Transmission Date: 20150529
  Serious: No
  Sender: FDA-Public Use
  Company Number: US-009507513-1412USA000273

PATIENT
  Sex: Female

DRUGS (4)
  1. PEGASYS [Suspect]
     Active Substance: PEGINTERFERON ALFA-2A
     Dosage: UNK, QW
  2. RIBAVIRIN (WARRICK) [Suspect]
     Active Substance: RIBAVIRIN
     Dosage: 1000 MG, QD
     Dates: end: 20110923
  3. VICTRELIS [Suspect]
     Active Substance: BOCEPREVIR
     Dosage: UNK
     Route: 048
     Dates: start: 20111021
  4. RIBAVIRIN (WARRICK) [Suspect]
     Active Substance: RIBAVIRIN
     Dosage: 1200 MG, QD
     Dates: start: 20110924

REACTIONS (2)
  - Headache [Not Recovered/Not Resolved]
  - Medication error [Unknown]
